FAERS Safety Report 9040727 (Version 1)
Quarter: 2013Q1

REPORT INFORMATION
  Report Type: Report from Study
  Country: US (occurrence: US)
  Receive Date: 20130129
  Receipt Date: 20130129
  Transmission Date: 20140127
  Serious: No
  Sender: FDA-Public Use
  Company Number: US-ABBOTT-12P-163-0889655-00

PATIENT
  Age: 59 Year
  Sex: Female
  Weight: 99.88 kg

DRUGS (5)
  1. HUMIRA 40 MG/0.8 ML PEN [Suspect]
     Indication: RHEUMATOID ARTHRITIS
     Dates: start: 200410, end: 201112
  2. METHOTREXATE [Concomitant]
     Indication: RHEUMATOID ARTHRITIS
  3. LYRICA [Concomitant]
     Indication: FIBROMYALGIA
  4. FOLIC ACID [Concomitant]
     Indication: RHEUMATOID ARTHRITIS
  5. TRAZODONE [Concomitant]
     Indication: INSOMNIA

REACTIONS (2)
  - Gastroenteritis viral [Recovered/Resolved]
  - Sinusitis [Not Recovered/Not Resolved]
